FAERS Safety Report 10628974 (Version 1)
Quarter: 2014Q4

REPORT INFORMATION
  Report Type: Spontaneous
  Country: US (occurrence: US)
  Receive Date: 20141205
  Receipt Date: 20141205
  Transmission Date: 20150529
  Serious: Yes (Hospitalization)
  Sender: FDA-Public Use
  Company Number: US-BRISTOL-MYERS SQUIBB COMPANY-21518287

PATIENT
  Sex: Female
  Weight: 72.56 kg

DRUGS (2)
  1. HEPARIN [Suspect]
     Active Substance: HEPARIN SODIUM
  2. COUMADIN [Suspect]
     Active Substance: WARFARIN SODIUM

REACTIONS (3)
  - Deep vein thrombosis [Unknown]
  - Cerebrovascular accident [Unknown]
  - Weight increased [Unknown]
